FAERS Safety Report 7518854-9 (Version None)
Quarter: 2011Q2

REPORT INFORMATION
  Report Type: 
  Country: None (occurrence: None)
  Receive Date: 20110512
  Receipt Date: 20110120
  Transmission Date: 20111010
  Serious: No
  Sender: FDA-Public Use
  Company Number: 1000018249

PATIENT
  Age: 51 Year
  Sex: Female

DRUGS (3)
  1. ATENOLOL [Concomitant]
  2. SAVELLA [Suspect]
     Indication: FIBROMYALGIA
     Dosage: 12.5 MG (12.5 MG, 1 IN 1 D), ORAL
     Route: 048
     Dates: start: 20110117, end: 20110117
  3. RELAFIN (FLUVOXAMINE MALEATE) (FLUVOXAMINE MALEATE) [Concomitant]

REACTIONS (3)
  - AGITATION [None]
  - INSOMNIA [None]
  - HYPERHIDROSIS [None]
